FAERS Safety Report 6722278-1 (Version None)
Quarter: 2010Q2

REPORT INFORMATION
  Report Type: 
  Country: None (occurrence: None)
  Receive Date: 20100512
  Receipt Date: 20100428
  Transmission Date: 20101027
  Serious: Yes (Other)
  Sender: FDA-Public Use
  Company Number: CA-GENENTECH-286784

PATIENT
  Sex: Female

DRUGS (8)
  1. XOLAIR [Suspect]
     Indication: ASTHMA
     Dosage: 375 MG, Q2W
     Route: 058
     Dates: start: 20070124
  2. XOLAIR [Suspect]
     Dosage: 375 MG, Q2W
     Route: 058
     Dates: start: 20100113
  3. XOLAIR [Suspect]
     Dosage: 375 MG, Q2W
     Route: 058
     Dates: start: 20100210
  4. XOLAIR [Suspect]
     Dosage: 375 MG, Q2W
     Route: 058
     Dates: start: 20100331
  5. CORTISONE [Concomitant]
     Indication: DRUG USE FOR UNKNOWN INDICATION
     Dosage: 50 MG, UNK
  6. VENTOLIN [Concomitant]
     Indication: DRUG USE FOR UNKNOWN INDICATION
  7. ASAPHEN [Concomitant]
     Indication: DRUG USE FOR UNKNOWN INDICATION
  8. IMDUR [Concomitant]
     Indication: DRUG USE FOR UNKNOWN INDICATION

REACTIONS (10)
  - BLOOD PRESSURE DECREASED [None]
  - BRONCHITIS [None]
  - CARBON MONOXIDE POISONING [None]
  - CARDIAC DISORDER [None]
  - CARDIOMYOPATHY [None]
  - DYSPNOEA [None]
  - MALAISE [None]
  - PRODUCTIVE COUGH [None]
  - SPUTUM DISCOLOURED [None]
  - UPPER RESPIRATORY TRACT INFECTION [None]
